FAERS Safety Report 9161237 (Version 2)
Quarter: 2013Q1

REPORT INFORMATION
  Report Type: Spontaneous
  Country: IL (occurrence: IL)
  Receive Date: 20130313
  Receipt Date: 20130321
  Transmission Date: 20140127
  Serious: Yes (Other)
  Sender: FDA-Public Use
  Company Number: IL-MERCK-1303ISR005830

PATIENT
  Age: 74 Year
  Sex: Male

DRUGS (4)
  1. JANUET [Suspect]
     Dosage: UNK
     Route: 048
     Dates: start: 201103
  2. SIMOVIL [Concomitant]
     Route: 048
  3. TRITACE [Concomitant]
  4. ASPIRIN [Concomitant]

REACTIONS (1)
  - Pancreatic carcinoma metastatic [Unknown]
